FAERS Safety Report 7340395-2 (Version None)
Quarter: 2011Q1

REPORT INFORMATION
  Report Type: 
  Country: None (occurrence: None)
  Receive Date: 20110309
  Receipt Date: 20110302
  Transmission Date: 20110831
  Serious: No
  Sender: FDA-Public Use
  Company Number: US-BIOGENIDEC-2011BI008321

PATIENT
  Age: 55 Year
  Sex: Female

DRUGS (1)
  1. TYSABRI [Suspect]
     Indication: MULTIPLE SCLEROSIS
     Route: 042
     Dates: start: 20091203, end: 20100901

REACTIONS (7)
  - MEMORY IMPAIRMENT [None]
  - STRESS [None]
  - CHILLS [None]
  - CONFUSIONAL STATE [None]
  - HYPERHIDROSIS [None]
  - ANXIETY [None]
  - BURNING SENSATION [None]
